FAERS Safety Report 8248788-6 (Version None)
Quarter: 2012Q1

REPORT INFORMATION
  Report Type: 
  Country: None (occurrence: None)
  Receive Date: 20120331
  Receipt Date: 20120322
  Transmission Date: 20120608
  Serious: Yes (Hospitalization)
  Sender: FDA-Public Use
  Company Number: JP-ALLERGAN-1203795US

PATIENT
  Age: 20 Year
  Sex: Female

DRUGS (9)
  1. BOTOX [Suspect]
     Dosage: 30 UNITS, LEFT SPLENIUS MUSCLE
     Route: 030
     Dates: start: 20120127, end: 20120127
  2. BOTOX [Suspect]
     Dosage: 30 UNITS, RIGHT SPLENIUS MUSCLE
     Route: 030
  3. BOTOX [Suspect]
     Dosage: 30 UNITS, TRAPEZIUS MUSCLE
     Route: 030
     Dates: start: 20120127, end: 20120127
  4. BOTOX [Suspect]
     Dosage: 30 UNITS, RIGHT TRAPEZIUS MUSCLE
     Route: 030
     Dates: start: 20120127, end: 20120127
  5. DEPAKENE [Concomitant]
     Indication: PRODUCT USED FOR UNKNOWN INDICATION
     Dosage: 3 SEPARATE DOSES PER DAY
     Route: 048
  6. TIZANIDINE HCL [Concomitant]
     Indication: PRODUCT USED FOR UNKNOWN INDICATION
     Dosage: 3 SEPERATE DOSES PER DAY
     Route: 048
  7. BOTOX [Suspect]
     Indication: TORTICOLLIS
     Dosage: 10 UNITS, LEFT STERNOCLEIDOMASTOID MUSCLE
     Route: 030
     Dates: start: 20120127, end: 20120127
  8. DIAMOX [Concomitant]
     Indication: PRODUCT USED FOR UNKNOWN INDICATION
     Dosage: 3 SEPARATE DOSES PER DAY
     Route: 048
  9. NITRAZEPAM [Concomitant]
     Indication: PRODUCT USED FOR UNKNOWN INDICATION
     Dosage: 3 SEPERATE DOSES PER DAY
     Route: 048

REACTIONS (1)
  - PNEUMONIA [None]
